FAERS Safety Report 6280367-2 (Version None)
Quarter: 2009Q3

REPORT INFORMATION
  Report Type: 
  Country: None (occurrence: None)
  Receive Date: 20090724
  Receipt Date: 20090714
  Transmission Date: 20100115
  Serious: Yes (Other)
  Sender: FDA-Public Use
  Company Number: ZA-JNJFOC-20090703758

PATIENT
  Age: 58 Year
  Sex: Female
  Weight: 75 kg

DRUGS (4)
  1. REVELLEX [Suspect]
     Route: 042
  2. REVELLEX [Suspect]
     Indication: RHEUMATOID ARTHRITIS
     Route: 042
  3. METHOTREXATE [Concomitant]
     Indication: RHEUMATOID ARTHRITIS
     Route: 048
  4. CELEBREX [Concomitant]
     Route: 048

REACTIONS (1)
  - LUPUS-LIKE SYNDROME [None]
